FAERS Safety Report 5511470-X (Version None)
Quarter: 2007Q4

REPORT INFORMATION
  Report Type: 
  Country: None (occurrence: None)
  Receive Date: 20071109
  Receipt Date: 20071106
  Transmission Date: 20080405
  Serious: Yes (Disabling)
  Sender: FDA-Public Use
  Company Number: US-ASTRAZENECA-2007UW14860

PATIENT
  Age: 57 Year
  Sex: Male
  Weight: 134.1 kg

DRUGS (1)
  1. ZOLADEX [Suspect]
     Indication: PROSTATE CANCER
     Route: 058

REACTIONS (1)
  - ANDROGEN DEFICIENCY [None]
